FAERS Safety Report 6079927-3 (Version None)
Quarter: 2009Q1

REPORT INFORMATION
  Report Type: 
  Country: None (occurrence: None)
  Receive Date: 20090217
  Receipt Date: 20090203
  Transmission Date: 20090719
  Serious: Yes (Other)
  Sender: FDA-Public Use
  Company Number: ES-JNJFOC-20090201581

PATIENT
  Sex: Female

DRUGS (8)
  1. REMICADE [Suspect]
     Indication: ARTHRITIS ENTEROPATHIC
     Route: 042
  2. CORTICOID [Concomitant]
  3. METHOTREXATE [Concomitant]
  4. SULFASALAZINE [Concomitant]
  5. MESALAZINE [Concomitant]
  6. ACFOL [Concomitant]
  7. BIOPHOSPHONATE [Concomitant]
  8. CALCIUM VITAMIN D [Concomitant]

REACTIONS (2)
  - BASAL CELL CARCINOMA [None]
  - BREAST CANCER [None]
